FAERS Safety Report 9084209 (Version 2)
Quarter: 2013Q1

REPORT INFORMATION
  Report Type: Report from Study
  Country: GB (occurrence: GB)
  Receive Date: 20130130
  Receipt Date: 20130305
  Transmission Date: 20140127
  Serious: Yes (Hospitalization, Other)
  Sender: FDA-Public Use
  Company Number: GB-009507513-1104USA03203

PATIENT
  Age: 69 Year
  Sex: Male
  Weight: 114 kg

DRUGS (3)
  1. EZETIMIBE (+) SIMVASTATIN [Suspect]
     Indication: ACUTE CORONARY SYNDROME
     Route: 048
     Dates: start: 20080424
  2. BLINDED THERAPY [Concomitant]
     Indication: ACUTE CORONARY SYNDROME
     Route: 048
     Dates: start: 20080424
  3. ASPIRIN [Concomitant]
     Dosage: 75,MG, UNK
     Route: 048
     Dates: start: 20080421

REACTIONS (1)
  - Syncope [Recovered/Resolved]
